FAERS Safety Report 13628120 (Version 1)
Quarter: 2017Q2

REPORT INFORMATION
  Report Type: Spontaneous
  Country: US (occurrence: US)
  Receive Date: 20170531
  Receipt Date: 20170531
  Transmission Date: 20170830
  Serious: Yes (Other)
  Sender: FDA-Public Use
  Company Number: US-ASTELLAS-1736075

PATIENT
  Sex: Male

DRUGS (7)
  1. FINASTERIDE. [Concomitant]
     Active Substance: FINASTERIDE
  2. MUCINEX [Concomitant]
     Active Substance: GUAIFENESIN
  3. GABAPENTIN. [Concomitant]
     Active Substance: GABAPENTIN
  4. MIRTAZAPINE. [Concomitant]
     Active Substance: MIRTAZAPINE
  5. CARVEDILOL. [Concomitant]
     Active Substance: CARVEDILOL
  6. TARCEVA [Suspect]
     Active Substance: ERLOTINIB HYDROCHLORIDE
     Indication: LUNG NEOPLASM MALIGNANT
     Route: 048
     Dates: start: 20150319
  7. FENTANYL. [Concomitant]
     Active Substance: FENTANYL

REACTIONS (3)
  - Metastatic neoplasm [Unknown]
  - Drug ineffective [Unknown]
  - Pain [Unknown]
